FAERS Safety Report 11095870 (Version 1)
Quarter: 2015Q2

REPORT INFORMATION
  Report Type: Spontaneous
  Country: US (occurrence: US)
  Receive Date: 20150507
  Receipt Date: 20150507
  Transmission Date: 20150821
  Serious: Yes (Hospitalization)
  Sender: FDA-Public Use
  Company Number: US-ASTRAZENECA-2015SE41428

PATIENT
  Sex: Female

DRUGS (2)
  1. FASLODEX [Suspect]
     Active Substance: FULVESTRANT
     Route: 030
     Dates: start: 20130613
  2. NEURONTIN [Concomitant]
     Active Substance: GABAPENTIN
     Dosage: EVERY NIGHT

REACTIONS (2)
  - Drug administration error [Unknown]
  - Neuralgia [Unknown]

NARRATIVE: CASE EVENT DATE: 20130613
